FAERS Safety Report 7746959-6 (Version None)
Quarter: 2011Q3

REPORT INFORMATION
  Report Type: 
  Country: None (occurrence: None)
  Receive Date: 20110913
  Receipt Date: 20110903
  Transmission Date: 20111222
  Serious: Yes (Hospitalization)
  Sender: FDA-Public Use
  Company Number: PHEH2011US03586

PATIENT
  Sex: Female
  Weight: 88.435 kg

DRUGS (1)
  1. GLEEVEC [Suspect]
     Indication: GASTRIC CANCER
     Dosage: 100 MG, DAILY
     Route: 048

REACTIONS (2)
  - BACK DISORDER [None]
  - CARDIAC DISORDER [None]
